FAERS Safety Report 23755935 (Version 1)
Quarter: 2024Q2

REPORT INFORMATION
  Report Type: Spontaneous
  Country: US (occurrence: US)
  Receive Date: 20240418
  Receipt Date: 20240418
  Transmission Date: 20240716
  Serious: No
  Sender: FDA-Public Use
  Company Number: US-ALVOGEN-2024092938

PATIENT

DRUGS (1)
  1. MACRODANTIN [Suspect]
     Active Substance: NITROFURANTOIN
     Indication: Urinary tract infection

REACTIONS (4)
  - Muscular weakness [Unknown]
  - Heart rate irregular [Unknown]
  - Adverse event [Unknown]
  - Pyrexia [Unknown]
